FAERS Safety Report 6150798-X (Version None)
Quarter: 2009Q2

REPORT INFORMATION
  Report Type: 
  Country: None (occurrence: None)
  Receive Date: 20090409
  Receipt Date: 20090406
  Transmission Date: 20091009
  Serious: Yes (Hospitalization)
  Sender: FDA-Public Use
  Company Number: US-MERCK-0904USA00898

PATIENT
  Age: 80 Year
  Sex: Male

DRUGS (3)
  1. FOSAMAX [Suspect]
     Indication: BONE DENSITY INCREASED
     Route: 048
     Dates: start: 20040101, end: 20090308
  2. PREDNISONE [Concomitant]
     Route: 065
  3. IMURAN [Concomitant]
     Route: 065

REACTIONS (5)
  - ASTHENIA [None]
  - HAEMOGLOBIN ABNORMAL [None]
  - INAPPROPRIATE SCHEDULE OF DRUG ADMINISTRATION [None]
  - OESOPHAGEAL DISORDER [None]
  - OVERDOSE [None]
